FAERS Safety Report 8419274-5 (Version None)
Quarter: 2012Q2

REPORT INFORMATION
  Report Type: 
  Country: None (occurrence: None)
  Receive Date: 20120607
  Receipt Date: 20120601
  Transmission Date: 20120825
  Serious: Yes (Hospitalization)
  Sender: FDA-Public Use
  Company Number: SG-ROCHE-1074393

PATIENT
  Age: 44 Year
  Sex: Male
  Weight: 76.3 kg

DRUGS (9)
  1. FAMOTIDINE [Concomitant]
     Indication: ABDOMINAL DISCOMFORT
     Dates: start: 20120307
  2. MAGNESIUM CARBONATE [Concomitant]
     Dates: start: 20120307
  3. MABTHERA [Suspect]
     Indication: NON-HODGKIN'S LYMPHOMA
     Route: 042
     Dates: start: 20111102
  4. VINCRISTINE [Suspect]
     Indication: NON-HODGKIN'S LYMPHOMA
     Route: 042
     Dates: start: 20111102
  5. CIPROFLOXACIN [Concomitant]
     Indication: INFECTION
     Dates: start: 20120308, end: 20120314
  6. HYOSCINE BUTYL BROMIDE [Concomitant]
     Dates: start: 20120307
  7. CYCLOPHOSPHAMIDE [Suspect]
     Indication: NON-HODGKIN'S LYMPHOMA
     Route: 042
     Dates: start: 20111102
  8. INOTUZUMAB OZOGAMICIN [Suspect]
     Indication: NON-HODGKIN'S LYMPHOMA
     Route: 042
     Dates: start: 20111103
  9. PREDNISONE TAB [Suspect]
     Indication: NON-HODGKIN'S LYMPHOMA
     Route: 048
     Dates: start: 20111102

REACTIONS (1)
  - ILEITIS [None]
